FAERS Safety Report 8593916-6 (Version None)
Quarter: 2012Q3

REPORT INFORMATION
  Report Type: 
  Country: None (occurrence: None)
  Receive Date: 20120814
  Receipt Date: 20120807
  Transmission Date: 20120928
  Serious: Yes (Hospitalization)
  Sender: FDA-Public Use
  Company Number: CA-ROCHE-1057884

PATIENT
  Sex: Male

DRUGS (5)
  1. FLOVENT [Concomitant]
  2. SINGULAIR [Concomitant]
  3. XOLAIR [Suspect]
     Indication: ASTHMA
     Route: 058
     Dates: start: 20120221
  4. SYMBICORT [Concomitant]
  5. PREDNISONE TAB [Concomitant]

REACTIONS (5)
  - OEDEMA PERIPHERAL [None]
  - DYSPNOEA EXERTIONAL [None]
  - PRODUCTIVE COUGH [None]
  - PNEUMONIA [None]
  - INFLUENZA LIKE ILLNESS [None]
